FAERS Safety Report 10679003 (Version 1)
Quarter: 2014Q4

REPORT INFORMATION
  Report Type: Spontaneous
  Country: US (occurrence: None)
  Receive Date: 20141224
  Receipt Date: 20141224
  Transmission Date: 20150529
  Serious: No
  Sender: FDA-Public Use
  Company Number: None

PATIENT
  Age: 64 Year
  Sex: Female

DRUGS (1)
  1. KYNAMRO [Suspect]
     Active Substance: MIPOMERSEN SODIUM
     Indication: PRODUCT USED FOR UNKNOWN INDICATION
     Route: 058
     Dates: start: 20141118

REACTIONS (5)
  - Nausea [None]
  - Influenza like illness [None]
  - Injection site bruising [None]
  - Pruritus [None]
  - Injection site erythema [None]

NARRATIVE: CASE EVENT DATE: 20141218
